FAERS Safety Report 5164932-1 (Version None)
Quarter: 2006Q4

REPORT INFORMATION
  Report Type: 
  Country: None (occurrence: None)
  Receive Date: 20061124
  Receipt Date: 20061115
  Transmission Date: 20070319
  Serious: Yes (Hospitalization)
  Sender: FDA-Public Use
  Company Number: 2006AL003596

PATIENT
  Age: 50 Year
  Sex: Female

DRUGS (1)
  1. IBUPROFEN [Suspect]
     Indication: ARTHRALGIA
     Dosage: 400 MG; X1; PO
     Route: 048
     Dates: start: 20061019, end: 20061019

REACTIONS (3)
  - CEREBRAL DISORDER [None]
  - MENINGITIS ASEPTIC [None]
  - MUSCLE SPASMS [None]
